FAERS Safety Report 4916105-2 (Version None)
Quarter: 2006Q1

REPORT INFORMATION
  Report Type: 
  Country: None (occurrence: None)
  Receive Date: 20060113
  Receipt Date: 20051003
  Transmission Date: 20060701
  Serious: No
  Sender: FDA-Public Use
  Company Number: 2005SP003361

PATIENT
  Age: 82 Year
  Sex: Male
  Weight: 83.9154 kg

DRUGS (6)
  1. LUNESTA [Suspect]
     Dosage: SEE IMAGE
     Route: 048
     Dates: start: 20050928, end: 20051001
  2. LUNESTA [Suspect]
     Dosage: SEE IMAGE
     Route: 048
     Dates: start: 20051001
  3. UNSPECIFIED HIGH BLOOD PRESSURE MEDICATION [Concomitant]
  4. UNSPECIFIED MEDICATION FOR HIGH CHOLESTEROL [Concomitant]
  5. UNSPECIFIED MEDICATION FOR GASTRIC REFLUX [Concomitant]
  6. ANTIHISTAMINES [Concomitant]

REACTIONS (2)
  - DRUG INEFFECTIVE [None]
  - MIDDLE INSOMNIA [None]
